FAERS Safety Report 15315634 (Version 1)
Quarter: 2018Q3

REPORT INFORMATION
  Report Type: Report from Study
  Country: HK (occurrence: HK)
  Receive Date: 20180824
  Receipt Date: 20180824
  Transmission Date: 20181010
  Serious: Yes (Other)
  Sender: FDA-Public Use
  Company Number: HK-MYLANLABS-2018M1062729

PATIENT
  Age: 65 Year
  Sex: Male

DRUGS (1)
  1. DOCETAXEL. [Suspect]
     Active Substance: DOCETAXEL
     Indication: PROSTATE CANCER METASTATIC
     Dosage: EVERY 3 WEEKS
     Route: 065

REACTIONS (2)
  - Drug-induced liver injury [Unknown]
  - Off label use [Unknown]
